FAERS Safety Report 16608883 (Version 1)
Quarter: 2019Q3

REPORT INFORMATION
  Report Type: Spontaneous
  Country: US (occurrence: US)
  Receive Date: 20190719
  Receipt Date: 20190719
  Transmission Date: 20191004
  Serious: No
  Sender: FDA-Public Use
  Company Number: None

PATIENT
  Age: 52 Year
  Sex: Female
  Weight: 96.75 kg

DRUGS (9)
  1. PENNSAID [Suspect]
     Active Substance: DICLOFENAC SODIUM
     Indication: CUBITAL TUNNEL SYNDROME
     Dosage: ?          QUANTITY:1 GRAM;?
     Route: 061
     Dates: start: 20190718, end: 20190719
  2. HYDROCHLOROTHYAZIDE [Concomitant]
     Active Substance: HYDROCHLOROTHIAZIDE
  3. IBUPROFEN. [Concomitant]
     Active Substance: IBUPROFEN
  4. LEVOTHYROXINE. [Concomitant]
     Active Substance: LEVOTHYROXINE
  5. LIPITOR [Concomitant]
     Active Substance: ATORVASTATIN CALCIUM
  6. AMBIEN [Concomitant]
     Active Substance: ZOLPIDEM TARTRATE
  7. METOPROLOL. [Concomitant]
     Active Substance: METOPROLOL
  8. PENNSAID [Suspect]
     Active Substance: DICLOFENAC SODIUM
     Indication: EPICONDYLITIS
     Dosage: ?          QUANTITY:1 GRAM;?
     Route: 061
     Dates: start: 20190718, end: 20190719
  9. VALSARTAN. [Concomitant]
     Active Substance: VALSARTAN

REACTIONS (1)
  - Taste disorder [None]

NARRATIVE: CASE EVENT DATE: 20190718
